FAERS Safety Report 7234931-4 (Version None)
Quarter: 2011Q1

REPORT INFORMATION
  Report Type: 
  Country: None (occurrence: None)
  Receive Date: 20110120
  Receipt Date: 20110114
  Transmission Date: 20110831
  Serious: Yes (Death)
  Sender: FDA-Public Use
  Company Number: FR-SANOFI-AVENTIS-2011SA002705

PATIENT
  Age: 71 Year
  Sex: Female

DRUGS (6)
  1. KARDEGIC [Concomitant]
     Route: 065
  2. AMLOR [Concomitant]
     Route: 065
  3. KAYEXALATE [Suspect]
     Indication: DRUG PRESCRIBING ERROR
     Route: 048
  4. MEDIATENSYL [Concomitant]
     Route: 065
  5. CIBACENE [Concomitant]
     Route: 065
  6. KAYEXALATE [Suspect]
     Route: 048

REACTIONS (3)
  - HYPOKALAEMIA [None]
  - CONDITION AGGRAVATED [None]
  - DRUG PRESCRIBING ERROR [None]
